FAERS Safety Report 12943087 (Version 1)
Quarter: 2016Q4

REPORT INFORMATION
  Report Type: Spontaneous
  Country: US (occurrence: US)
  Receive Date: 20161115
  Receipt Date: 20161115
  Transmission Date: 20170207
  Serious: No
  Sender: FDA-Public Use
  Company Number: US-PFIZER INC-2016315564

PATIENT
  Age: 62 Year
  Sex: Male
  Weight: 97.51 kg

DRUGS (7)
  1. PERCOCET [Concomitant]
     Active Substance: ACETAMINOPHEN\OXYCODONE HYDROCHLORIDE
     Indication: POST LAMINECTOMY SYNDROME
     Dosage: 1 DF, AS NEEDED (8 HOURS AS NEEDED)
     Route: 048
  2. MORPHINE [Concomitant]
     Active Substance: MORPHINE
     Indication: POST LAMINECTOMY SYNDROME
     Dosage: 15 MG, 2X/DAY (EVERY 12 HOURS)
     Route: 048
  3. LYRICA [Suspect]
     Active Substance: PREGABALIN
     Indication: NECK PAIN
     Dosage: 100 MG, 2X/DAY
     Route: 048
  4. LYRICA [Suspect]
     Active Substance: PREGABALIN
     Indication: SPINAL OSTEOARTHRITIS
  5. PERCOCET [Concomitant]
     Active Substance: ACETAMINOPHEN\OXYCODONE HYDROCHLORIDE
     Indication: LUMBAR RADICULOPATHY
     Dosage: UNK UNK, 4X/DAY  [(OXYCODONE HYDROCHLORIDE10 MG)/(PARACETAMOL 325 MG)]
  6. MEDROL [Concomitant]
     Active Substance: METHYLPREDNISOLONE
     Dosage: UNK
     Route: 048
  7. LYRICA [Suspect]
     Active Substance: PREGABALIN
     Indication: INTERVERTEBRAL DISC DEGENERATION
     Dosage: 75 MG, 2X/DAY
     Route: 048

REACTIONS (6)
  - Back pain [Unknown]
  - Hypoaesthesia [Unknown]
  - Pain in extremity [Unknown]
  - Pain [Unknown]
  - Condition aggravated [Unknown]
  - Burning sensation [Unknown]
